FAERS Safety Report 6297725-2 (Version None)
Quarter: 2009Q3

REPORT INFORMATION
  Report Type: 
  Country: None (occurrence: None)
  Receive Date: 20090805
  Receipt Date: 20090722
  Transmission Date: 20100115
  Serious: Yes (Death, Other)
  Sender: FDA-Public Use
  Company Number: US-ROCHE-641526

PATIENT
  Sex: Male
  Weight: 81.6 kg

DRUGS (2)
  1. PEG-INTERFERON A-2A (RO 25-8310) [Suspect]
     Indication: HEPATITIS C
     Route: 058
     Dates: start: 20081203, end: 20090404
  2. RIBAVIRIN [Suspect]
     Indication: HEPATITIS C
     Route: 048
     Dates: start: 20081203, end: 20090404

REACTIONS (3)
  - CARDIO-RESPIRATORY ARREST [None]
  - IDIOPATHIC PULMONARY FIBROSIS [None]
  - PATHOGEN RESISTANCE [None]
